FAERS Safety Report 12274417 (Version 1)
Quarter: 2016Q2

REPORT INFORMATION
  Report Type: Spontaneous
  Country: US (occurrence: US)
  Receive Date: 20160415
  Receipt Date: 20160415
  Transmission Date: 20160815
  Serious: No
  Sender: FDA-Public Use
  Company Number: US-ALLERGAN-1512554US

PATIENT
  Sex: Female

DRUGS (3)
  1. MYOBLOC [Concomitant]
     Active Substance: RIMABOTULINUMTOXINB
     Indication: PRODUCT USED FOR UNKNOWN INDICATION
     Dosage: UNK
  2. HYDRALAZINE [Concomitant]
     Active Substance: HYDRALAZINE HYDROCHLORIDE
     Indication: HYPERTENSION
     Dosage: UNK
     Route: 048
  3. LUMIGAN [Suspect]
     Active Substance: BIMATOPROST
     Indication: GLAUCOMA
     Dosage: 2 GTT, QD
     Route: 047

REACTIONS (3)
  - Erythema of eyelid [Not Recovered/Not Resolved]
  - Erythema [Not Recovered/Not Resolved]
  - Intraocular pressure increased [Unknown]
